FAERS Safety Report 12476881 (Version 1)
Quarter: 2016Q2

REPORT INFORMATION
  Report Type: Report from Study
  Country: CH (occurrence: CH)
  Receive Date: 20160617
  Receipt Date: 20160617
  Transmission Date: 20160815
  Serious: Yes (Death, Hospitalization)
  Sender: FDA-Public Use
  Company Number: CH-NAPPMUNDI-GBR-2016-0037051

PATIENT
  Age: 53 Year
  Sex: Female
  Weight: 48 kg

DRUGS (3)
  1. MBG453 [Suspect]
     Active Substance: INVESTIGATIONAL PRODUCT
     Indication: MALIGNANT PERITONEAL NEOPLASM
     Dosage: 240 MG, MONTHLY
     Route: 042
     Dates: start: 20160310, end: 20160407
  2. TARGIN TABLETTEN RETARD [Concomitant]
     Active Substance: NALOXONE HYDROCHLORIDE\OXYCODONE HYDROCHLORIDE
     Indication: PRODUCT USED FOR UNKNOWN INDICATION
     Dosage: UNK
     Dates: end: 20160324
  3. MST CONTINUS [Suspect]
     Active Substance: MORPHINE SULFATE
     Indication: ABDOMINAL PAIN
     Dosage: 60 MG, BID
     Route: 048
     Dates: start: 20160324, end: 20160402

REACTIONS (7)
  - Malignant peritoneal neoplasm [Fatal]
  - Abdominal pain [None]
  - Malignant neoplasm progression [Fatal]
  - Subileus [Recovered/Resolved]
  - Nausea [None]
  - Constipation [None]
  - Vomiting [None]

NARRATIVE: CASE EVENT DATE: 20160402
